FAERS Safety Report 23589289 (Version 1)
Quarter: 2024Q1

REPORT INFORMATION
  Report Type: Spontaneous
  Country: JP (occurrence: JP)
  Receive Date: 20240303
  Receipt Date: 20240303
  Transmission Date: 20240409
  Serious: Yes (Death, Other)
  Sender: FDA-Public Use
  Company Number: JP-BRISTOL-MYERS SQUIBB COMPANY-2024-034028

PATIENT
  Age: 90 Year
  Sex: Male

DRUGS (2)
  1. IPILIMUMAB [Suspect]
     Active Substance: IPILIMUMAB
     Indication: Pleural mesothelioma malignant
  2. NIVOLUMAB [Suspect]
     Active Substance: NIVOLUMAB
     Indication: Pleural mesothelioma malignant

REACTIONS (1)
  - Aspiration [Fatal]
